FAERS Safety Report 5037770-8 (Version None)
Quarter: 2006Q2

REPORT INFORMATION
  Report Type: 
  Country: None (occurrence: None)
  Receive Date: 20060626
  Receipt Date: 20060613
  Transmission Date: 20061013
  Serious: Yes (Other)
  Sender: FDA-Public Use
  Company Number: 2006-06-0018

PATIENT
  Sex: Female

DRUGS (1)
  1. AERIUS (DESLORATADINE) [Suspect]

REACTIONS (2)
  - ERYTHEMA MULTIFORME [None]
  - TOXIC SKIN ERUPTION [None]
